FAERS Safety Report 6632380-0 (Version None)
Quarter: 2010Q1

REPORT INFORMATION
  Report Type: 
  Country: None (occurrence: None)
  Receive Date: 20100312
  Receipt Date: 20100303
  Transmission Date: 20100710
  Serious: Yes (Death)
  Sender: FDA-Public Use
  Company Number: JP-MERCK-1003USA01015

PATIENT
  Age: 68 Year
  Sex: Female

DRUGS (15)
  1. DECADRON [Suspect]
     Indication: PROPHYLAXIS OF NAUSEA AND VOMITING
     Route: 048
  2. DECADRON [Suspect]
     Dosage: ON DAYS 2-4
     Route: 048
  3. DECADRON [Suspect]
     Route: 048
  4. DECADRON [Suspect]
     Indication: PROPHYLAXIS OF NAUSEA AND VOMITING
     Route: 042
  5. DECADRON [Suspect]
     Route: 042
  6. GRANISETRON HYDROCHLORIDE [Concomitant]
     Indication: PROPHYLAXIS OF NAUSEA AND VOMITING
     Route: 065
  7. PROCHLORPERAZINE [Concomitant]
     Indication: PROPHYLAXIS OF NAUSEA AND VOMITING
     Route: 065
  8. DOXORUBICIN HYDROCHLORIDE [Concomitant]
     Indication: BREAST CANCER
     Route: 042
  9. DOXORUBICIN HYDROCHLORIDE [Concomitant]
     Route: 042
  10. DOXORUBICIN HYDROCHLORIDE [Concomitant]
     Indication: METASTASES TO LYMPH NODES
     Route: 042
  11. DOXORUBICIN HYDROCHLORIDE [Concomitant]
     Route: 042
  12. CYCLOPHOSPHAMIDE [Concomitant]
     Indication: BREAST CANCER
     Route: 042
  13. CYCLOPHOSPHAMIDE [Concomitant]
     Route: 042
  14. CYCLOPHOSPHAMIDE [Concomitant]
     Indication: METASTASES TO LYMPH NODES
     Route: 042
  15. CYCLOPHOSPHAMIDE [Concomitant]
     Route: 042

REACTIONS (2)
  - COMPLETED SUICIDE [None]
  - DEPRESSIVE SYMPTOM [None]
